FAERS Safety Report 14052375 (Version 1)
Quarter: 2017Q4

REPORT INFORMATION
  Report Type: Spontaneous
  Country: US (occurrence: US)
  Receive Date: 20171005
  Receipt Date: 20171005
  Transmission Date: 20180321
  Serious: Yes (Other)
  Sender: FDA-Public Use
  Company Number: None

PATIENT
  Age: 30 Year
  Sex: Female

DRUGS (1)
  1. KIRKLAND SIGNATURE ALLER TEC ALLERGY [Suspect]
     Active Substance: CETIRIZINE HYDROCHLORIDE
     Indication: MULTIPLE ALLERGIES
     Route: 048
     Dates: end: 20171003

REACTIONS (1)
  - Pruritus [None]

NARRATIVE: CASE EVENT DATE: 20171004
